FAERS Safety Report 12900940 (Version 1)
Quarter: 2016Q4

REPORT INFORMATION
  Report Type: Report from Study
  Country: None (occurrence: HU)
  Receive Date: 20161101
  Receipt Date: 20161101
  Transmission Date: 20170207
  Serious: Yes (Hospitalization)
  Sender: FDA-Public Use
  Company Number: HU-ABBVIE-16K-076-1765861-00

PATIENT
  Age: 41 Year
  Sex: Male

DRUGS (4)
  1. BUDENOFALK [Concomitant]
     Active Substance: BUDESONIDE
     Indication: PRODUCT USED FOR UNKNOWN INDICATION
     Route: 054
  2. HUMIRA [Suspect]
     Active Substance: ADALIMUMAB
     Indication: COLITIS ULCERATIVE
     Route: 058
     Dates: start: 20160629, end: 20161024
  3. MEDROL [Concomitant]
     Active Substance: METHYLPREDNISOLONE
     Indication: PRODUCT USED FOR UNKNOWN INDICATION
     Route: 048
  4. SALOFALK [Concomitant]
     Active Substance: MESALAMINE
     Indication: PRODUCT USED FOR UNKNOWN INDICATION
     Route: 048

REACTIONS (7)
  - Drug effect decreased [Recovering/Resolving]
  - Asthenia [Unknown]
  - Gastrointestinal inflammation [Unknown]
  - Haematochezia [Unknown]
  - Frequent bowel movements [Unknown]
  - Anal incontinence [Unknown]
  - Abdominal pain [Unknown]

NARRATIVE: CASE EVENT DATE: 2016
